FAERS Safety Report 9831484 (Version 3)
Quarter: 2014Q1

REPORT INFORMATION
  Report Type: Spontaneous
  Country: US (occurrence: US)
  Receive Date: 20140121
  Receipt Date: 20140224
  Transmission Date: 20141002
  Serious: No
  Sender: FDA-Public Use
  Company Number: US-009507513-1401USA005263

PATIENT
  Sex: Female

DRUGS (3)
  1. VICTRELIS [Suspect]
     Indication: HEPATITIS C
     Dosage: 800 MG, THREE TIMES DAILY
     Route: 048
     Dates: start: 201312
  2. PEGASYS [Suspect]
  3. RIBASPHERE [Suspect]

REACTIONS (14)
  - Sleep disorder [Unknown]
  - Epistaxis [Unknown]
  - Dysgeusia [Unknown]
  - Pyrexia [Unknown]
  - Chills [Unknown]
  - Headache [Unknown]
  - Nausea [Unknown]
  - Vomiting [Unknown]
  - Malaise [Unknown]
  - Influenza like illness [Unknown]
  - Diarrhoea [Unknown]
  - Decreased appetite [Unknown]
  - Fatigue [Unknown]
  - Product taste abnormal [Unknown]
